FAERS Safety Report 6288133-9 (Version None)
Quarter: 2009Q3

REPORT INFORMATION
  Report Type: 
  Country: None (occurrence: None)
  Receive Date: 20090729
  Receipt Date: 20080626
  Transmission Date: 20100115
  Serious: No
  Sender: FDA-Public Use
  Company Number: A0735166A

PATIENT
  Age: 4 Month

DRUGS (1)
  1. RANITIDINE [Suspect]
     Route: 048

REACTIONS (1)
  - VOMITING [None]
